FAERS Safety Report 7898440-1 (Version None)
Quarter: 2011Q4

REPORT INFORMATION
  Report Type: 
  Country: None (occurrence: None)
  Receive Date: 20111107
  Receipt Date: 20111027
  Transmission Date: 20120403
  Serious: Yes (Death)
  Sender: FDA-Public Use
  Company Number: JP-ACTELION-A-CH2011-56268

PATIENT
  Sex: Female
  Weight: 37 kg

DRUGS (7)
  1. TRACLEER [Suspect]
     Indication: PULMONARY ARTERIAL HYPERTENSION
     Dosage: 62.5 MG, BID
     Route: 048
     Dates: start: 20090126, end: 20091126
  2. TRACLEER [Suspect]
     Dosage: 125 MG, BID
     Route: 048
     Dates: start: 20091225, end: 20101002
  3. ENALAPRIL MALEATE [Concomitant]
  4. OXYGEN [Concomitant]
  5. TRACLEER [Suspect]
     Dosage: 93.75 MG, BID
     Route: 048
     Dates: start: 20091127, end: 20091224
  6. CAPTOPRIL [Concomitant]
  7. AMLODIPINE BESYLATE [Concomitant]

REACTIONS (4)
  - BLOOD ALKALINE PHOSPHATASE INCREASED [None]
  - DRUG INEFFECTIVE [None]
  - CONDITION AGGRAVATED [None]
  - PULMONARY HYPERTENSION [None]
